FAERS Safety Report 13141371 (Version 1)
Quarter: 2017Q1

REPORT INFORMATION
  Report Type: Report from Study
  Country: US (occurrence: US)
  Receive Date: 20170123
  Receipt Date: 20170123
  Transmission Date: 20170428
  Serious: Yes (Other)
  Sender: FDA-Public Use
  Company Number: US-AMGEN-USASL2017003622

PATIENT
  Age: 81 Year
  Sex: Female

DRUGS (1)
  1. REPATHA [Suspect]
     Active Substance: EVOLOCUMAB
     Indication: CAROTID ARTERY DISEASE
     Dosage: UNK, Q2WK
     Route: 065
     Dates: start: 201603

REACTIONS (1)
  - Drug dose omission [Recovering/Resolving]

NARRATIVE: CASE EVENT DATE: 20161201
